FAERS Safety Report 17974358 (Version 1)
Quarter: 2020Q3

REPORT INFORMATION
  Report Type: Spontaneous
  Country: US (occurrence: US)
  Receive Date: 20200702
  Receipt Date: 20200702
  Transmission Date: 20201103
  Serious: Yes (Life-Threatening, Other)
  Sender: FDA-Public Use
  Company Number: None

PATIENT
  Age: 58 Year
  Sex: Male
  Weight: 100.6 kg

DRUGS (18)
  1. ALBUTEROL. [Concomitant]
     Active Substance: ALBUTEROL
  2. FENTANYL. [Concomitant]
     Active Substance: FENTANYL
  3. PROTONIX [Concomitant]
     Active Substance: PANTOPRAZOLE SODIUM
  4. CISATRACURIUM. [Concomitant]
     Active Substance: CISATRACURIUM
  5. HYDRALAZINE [Concomitant]
     Active Substance: HYDRALAZINE HYDROCHLORIDE
  6. ACETAMINOPHEN. [Concomitant]
     Active Substance: ACETAMINOPHEN
  7. DEXAMETHASONE. [Concomitant]
     Active Substance: DEXAMETHASONE
  8. HEPARIN [Concomitant]
     Active Substance: HEPARIN SODIUM
  9. HUMULIN R [Concomitant]
     Active Substance: INSULIN HUMAN
  10. REMDESIVIR. [Suspect]
     Active Substance: REMDESIVIR
     Indication: COVID-19 PNEUMONIA
     Route: 042
     Dates: start: 20200625, end: 20200627
  11. SENNA [Concomitant]
     Active Substance: SENNA LEAF\SENNOSIDES\SENNOSIDES A AND B
  12. PROPOFOL. [Concomitant]
     Active Substance: PROPOFOL
  13. ROBITUSSIN DM [Concomitant]
     Active Substance: DEXTROMETHORPHAN HYDROBROMIDE\GUAIFENESIN
  14. REGLAN [Concomitant]
     Active Substance: METOCLOPRAMIDE HYDROCHLORIDE
  15. VERSED [Concomitant]
     Active Substance: MIDAZOLAM HYDROCHLORIDE
  16. NOREPINEPHRINE. [Concomitant]
     Active Substance: NOREPINEPHRINE
  17. VANCOMYCIN [Concomitant]
     Active Substance: VANCOMYCIN
  18. CEFTAZIDIME. [Concomitant]
     Active Substance: CEFTAZIDIME

REACTIONS (3)
  - Alanine aminotransferase increased [None]
  - Therapy interrupted [None]
  - Aspartate aminotransferase increased [None]

NARRATIVE: CASE EVENT DATE: 20200627
